FAERS Safety Report 7179586-2 (Version None)
Quarter: 2010Q4

REPORT INFORMATION
  Report Type: 
  Country: None (occurrence: None)
  Receive Date: 20101221
  Receipt Date: 20101214
  Transmission Date: 20110411
  Serious: Yes (Death)
  Sender: FDA-Public Use
  Company Number: PHHY2010IT86173

PATIENT
  Age: 11 Year
  Sex: Female

DRUGS (23)
  1. CUBICIN [Suspect]
     Indication: ENTEROCOCCAL INFECTION
     Dosage: 4 MG/KG, QD
     Route: 042
     Dates: start: 20090101, end: 20090101
  2. LEVOFLOXACIN [Suspect]
     Dosage: UNK
  3. PIPERACILLIN AND TAZOBACTAM [Suspect]
     Dosage: UNK
  4. CYCLOPHOSPHAMIDE [Suspect]
     Dosage: UNK
  5. METHOTREXATE [Suspect]
  6. CYCLOSPORINE [Suspect]
  7. MEROPENEM [Concomitant]
     Dosage: UNK
  8. DOXYCYCLINE [Concomitant]
     Dosage: UNK
  9. ANTI-THYMOGLOBULIN [Concomitant]
     Dosage: UNK
  10. FLUDARABINE PHOSPHATE [Concomitant]
     Dosage: UNK
  11. THIOTEPA [Concomitant]
     Dosage: UNK
  12. RITUXIMAB [Concomitant]
     Dosage: UNK
  13. METHYLPREDNISOLONE [Concomitant]
     Dosage: UNK
  14. CIPROFLOXACIN [Concomitant]
     Dosage: UNK
  15. PENTAMIDINE ISETHIONATE [Concomitant]
     Dosage: UNK
  16. ANTIVIRALS FOR SYSTEMIC USE [Concomitant]
     Dosage: UNK
  17. AMPHOTERICIN B [Concomitant]
     Dosage: UNK
  18. VORICONAZOLE [Concomitant]
     Dosage: UNK
  19. CASPOFUNGIN [Concomitant]
     Dosage: UNK
  20. LINEZOLID [Concomitant]
     Dosage: UNK
  21. CEFTAZIDIME [Concomitant]
  22. AMIKACIN [Concomitant]
  23. VANCOMYCIN [Concomitant]

REACTIONS (4)
  - BLOOD STEM CELL TRANSPLANT FAILURE [None]
  - ENTEROCOCCAL SEPSIS [None]
  - MULTI-ORGAN FAILURE [None]
  - PANCYTOPENIA [None]
